FAERS Safety Report 19733708 (Version 1)
Quarter: 2021Q3

REPORT INFORMATION
  Report Type: Spontaneous
  Country: US (occurrence: US)
  Receive Date: 20210823
  Receipt Date: 20210823
  Transmission Date: 20211014
  Serious: No
  Sender: FDA-Public Use
  Company Number: US-GLAXOSMITHKLINE-US2021173955

PATIENT
  Age: 8 Year
  Sex: Male

DRUGS (1)
  1. FLONASE ALLERGY RELIEF [Suspect]
     Active Substance: FLUTICASONE PROPIONATE
     Indication: ALLERGY PROPHYLAXIS
     Dosage: 2 PUFF(S), QD, 1 SPRAY IN EACH NOSTRIL EVERY MORNING
     Route: 055

REACTIONS (3)
  - Product use in unapproved indication [Unknown]
  - Therapeutic response unexpected [Unknown]
  - Productive cough [Unknown]
